FAERS Safety Report 23443850 (Version 1)
Quarter: 2024Q1

REPORT INFORMATION
  Report Type: Spontaneous
  Country: US (occurrence: None)
  Receive Date: 20240124
  Receipt Date: 20240124
  Transmission Date: 20240410
  Serious: Yes (Life-Threatening, Hospitalization)
  Sender: FDA-Public Use
  Company Number: None

PATIENT
  Age: 66 Year
  Sex: Male
  Weight: 76.5 kg

DRUGS (1)
  1. TRIAMTERENE [Suspect]
     Active Substance: TRIAMTERENE
     Indication: Hypertension
     Dosage: 1 TABLET DAILY ORAL
     Route: 048
     Dates: start: 20240119, end: 20240123

REACTIONS (4)
  - Loss of consciousness [None]
  - Eye movement disorder [None]
  - Loss of consciousness [None]
  - Memory impairment [None]

NARRATIVE: CASE EVENT DATE: 20240122
